FAERS Safety Report 7068608-5 (Version None)
Quarter: 2010Q4

REPORT INFORMATION
  Report Type: 
  Country: None (occurrence: None)
  Receive Date: 20101027
  Receipt Date: 20101027
  Transmission Date: 20110411
  Serious: Yes (Other)
  Sender: FDA-Public Use
  Company Number: None

PATIENT
  Age: 4 Month
  Sex: Male
  Weight: 7.761 kg

DRUGS (3)
  1. TEETHING TABLETS HYLAND [Suspect]
     Indication: DISCOMFORT
     Dosage: 1-2 TABLETS EVERY 6 HOURS PO
     Route: 048
     Dates: start: 20101006, end: 20101025
  2. TEETHING TABLETS HYLAND [Suspect]
     Indication: IRRITABILITY
     Dosage: 1-2 TABLETS EVERY 6 HOURS PO
     Route: 048
     Dates: start: 20101006, end: 20101025
  3. TEETHING TABLETS HYLAND [Suspect]
     Indication: RESTLESSNESS
     Dosage: 1-2 TABLETS EVERY 6 HOURS PO
     Route: 048
     Dates: start: 20101006, end: 20101025

REACTIONS (2)
  - CONSTIPATION [None]
  - SCREAMING [None]
